FAERS Safety Report 11931762 (Version 1)
Quarter: 2016Q1

REPORT INFORMATION
  Report Type: Report from Study
  Country: US (occurrence: US)
  Receive Date: 20160120
  Receipt Date: 20160120
  Transmission Date: 20160526
  Serious: No
  Sender: FDA-Public Use
  Company Number: US-THERATECHNOLOGIES, INC.-TH-2016-00002

PATIENT
  Age: 48 Year
  Sex: Male

DRUGS (2)
  1. EGRIFTA [Suspect]
     Active Substance: TESAMORELIN
     Dosage: UNKNOWN
  2. SEROSTIM [Concomitant]
     Active Substance: SOMATROPIN
     Dosage: UNKNOWN

REACTIONS (1)
  - Headache [Unknown]

NARRATIVE: CASE EVENT DATE: 201601
